FAERS Safety Report 26002774 (Version 1)
Quarter: 2025Q4

REPORT INFORMATION
  Report Type: Report from Study
  Country: GB (occurrence: GB)
  Receive Date: 20251106
  Receipt Date: 20251106
  Transmission Date: 20260118
  Serious: Yes (Hospitalization)
  Sender: ABBVIE
  Company Number: GB-ABBVIE-6530692

PATIENT
  Age: 69 Year
  Sex: Female

DRUGS (1)
  1. SKYRIZI [Suspect]
     Active Substance: RISANKIZUMAB-RZAA
     Indication: Psoriasis
     Dosage: 150MG/1ML. DOSE FORM: SOLUTION FOR INJECTION IN PRE-FILLED PEN. STOP DATE: 2025
     Route: 058
     Dates: start: 20250709

REACTIONS (3)
  - Tibia fracture [Unknown]
  - Fall [Unknown]
  - Fistula [Unknown]

NARRATIVE: CASE EVENT DATE: 20250101
